FAERS Safety Report 5753825-4 (Version None)
Quarter: 2008Q2

REPORT INFORMATION
  Report Type: 
  Country: None (occurrence: None)
  Receive Date: 20080530
  Receipt Date: 20080521
  Transmission Date: 20081010
  Serious: Yes (Hospitalization)
  Sender: FDA-Public Use
  Company Number: US-MERCK-0705USA04175

PATIENT
  Age: 54 Year
  Sex: Female

DRUGS (2)
  1. FOSAMAX [Suspect]
     Indication: OSTEOPOROSIS
     Route: 048
     Dates: start: 20040408, end: 20060501
  2. PREMARIN [Concomitant]
     Route: 065
     Dates: start: 19970101

REACTIONS (14)
  - ABDOMINAL PAIN [None]
  - ANGIOPATHY [None]
  - BLOOD CHOLESTEROL INCREASED [None]
  - DENTAL CARIES [None]
  - GASTRIC INFECTION [None]
  - GINGIVAL BLEEDING [None]
  - GINGIVAL DISORDER [None]
  - INFECTION [None]
  - JAW DISORDER [None]
  - ORAL INFECTION [None]
  - PERIODONTAL DISEASE [None]
  - RHEUMATOID ARTHRITIS [None]
  - TOOTH LOSS [None]
  - UPPER RESPIRATORY TRACT INFECTION [None]
